FAERS Safety Report 10257327 (Version 1)
Quarter: 2014Q2

REPORT INFORMATION
  Report Type: Spontaneous
  Country: US (occurrence: None)
  Receive Date: 20140623
  Receipt Date: 20140623
  Transmission Date: 20141212
  Serious: Yes (Hospitalization)
  Sender: FDA-Public Use
  Company Number: None

PATIENT
  Age: 5 Year
  Sex: Female
  Weight: 18.8 kg

DRUGS (4)
  1. METHOTREXATE [Suspect]
  2. DEXAMETHASONE [Suspect]
  3. VINCRISTINE SULFATE [Suspect]
  4. PEG-L-ASPARAGINASE (PEGASPARGASE, ONCOSPAR) [Suspect]

REACTIONS (11)
  - Febrile neutropenia [None]
  - Abdominal pain [None]
  - Vomiting [None]
  - Dehydration [None]
  - Hypotension [None]
  - Tachycardia [None]
  - Pseudomonal sepsis [None]
  - Lung infiltration [None]
  - Fluid overload [None]
  - Convulsion [None]
  - Respiratory distress [None]
